FAERS Safety Report 15419277 (Version 2)
Quarter: 2020Q4

REPORT INFORMATION
  Report Type: Spontaneous
  Country: US (occurrence: US)
  Receive Date: 20180924
  Receipt Date: 20201019
  Transmission Date: 20210113
  Serious: No
  Sender: FDA-Public Use
  Company Number: US-PFIZER INC-2018381793

PATIENT
  Age: 62 Year
  Sex: Male

DRUGS (4)
  1. LYRICA [Suspect]
     Active Substance: PREGABALIN
     Indication: NEURALGIA
     Dosage: 50 MG, UNK
  2. LYRICA [Suspect]
     Active Substance: PREGABALIN
     Indication: MIGRAINE
     Dosage: 100 MG, UNK
  3. LYRICA [Suspect]
     Active Substance: PREGABALIN
     Dosage: 100 MG, 2X/DAY
     Route: 048
  4. LYRICA [Suspect]
     Active Substance: PREGABALIN
     Dosage: 50 MG, 1X/DAY (QHS, BEFORE BED)
     Route: 048

REACTIONS (1)
  - Therapeutic product effect incomplete [Unknown]
